FAERS Safety Report 17085617 (Version 1)
Quarter: 2019Q4

REPORT INFORMATION
  Report Type: Spontaneous
  Country: US (occurrence: US)
  Receive Date: 20191127
  Receipt Date: 20191127
  Transmission Date: 20200122
  Serious: Yes (Life-Threatening)
  Sender: FDA-Public Use
  Company Number: None

PATIENT
  Age: 63 Year
  Sex: Female
  Weight: 53.55 kg

DRUGS (14)
  1. PROVERA [Concomitant]
     Active Substance: MEDROXYPROGESTERONE ACETATE
  2. ALLEGRA [Concomitant]
     Active Substance: FEXOFENADINE HYDROCHLORIDE
  3. EMGALITY [Suspect]
     Active Substance: GALCANEZUMAB-GNLM
     Indication: MIGRAINE
     Dosage: ?          QUANTITY:2 INJECTION(S);OTHER FREQUENCY:MONTHLY;?
     Route: 058
     Dates: start: 20191112, end: 20191112
  4. EPI EN [Concomitant]
  5. BIOCLEANSE PROBIOTIC [Concomitant]
  6. PEPCID [Concomitant]
     Active Substance: FAMOTIDINE
  7. DEXILANT [Concomitant]
     Active Substance: DEXLANSOPRAZOLE
  8. VITAMIN [Concomitant]
     Active Substance: VITAMINS
  9. CELEBREX [Concomitant]
     Active Substance: CELECOXIB
  10. GABAPENTIN. [Concomitant]
     Active Substance: GABAPENTIN
  11. MAXALT [Concomitant]
     Active Substance: RIZATRIPTAN BENZOATE
  12. PREDNISONE. [Concomitant]
     Active Substance: PREDNISONE
  13. OSTEO BI-FLEX [Concomitant]
     Active Substance: CHONDROITIN SULFATE A\GLUCOSAMINE
  14. FLONASE [Concomitant]
     Active Substance: FLUTICASONE PROPIONATE

REACTIONS (8)
  - Lacrimation increased [None]
  - Chest pain [None]
  - Swollen tongue [None]
  - Nausea [None]
  - Chest discomfort [None]
  - Taste disorder [None]
  - Cough [None]
  - Palatal disorder [None]

NARRATIVE: CASE EVENT DATE: 20191112
